FAERS Safety Report 5716928-6 (Version None)
Quarter: 2008Q2

REPORT INFORMATION
  Report Type: 
  Country: None (occurrence: None)
  Receive Date: 20080424
  Receipt Date: 20080411
  Transmission Date: 20081010
  Serious: Yes (Death)
  Sender: FDA-Public Use
  Company Number: BE-AMGEN-US275325

PATIENT
  Age: 59 Year
  Sex: Female
  Weight: 97 kg

DRUGS (7)
  1. ENBREL [Suspect]
     Indication: RHEUMATOID ARTHRITIS
     Dosage: 50 MG / WEEK
     Route: 058
     Dates: start: 20020608, end: 20080312
  2. GLUCOPHAGE [Concomitant]
     Route: 065
  3. ALDACTAZIDE [Concomitant]
     Route: 065
  4. SINGULAIR [Concomitant]
     Route: 065
  5. FOLIC ACID [Concomitant]
     Route: 065
  6. LEDERTREXATE [Concomitant]
     Indication: RHEUMATOID ARTHRITIS
     Route: 065
     Dates: start: 20020101
  7. INDOCIN [Concomitant]
     Route: 065

REACTIONS (2)
  - NON-HODGKIN'S LYMPHOMA [None]
  - STREPTOCOCCAL SEPSIS [None]
